FAERS Safety Report 4911744-7 (Version None)
Quarter: 2006Q1

REPORT INFORMATION
  Report Type: 
  Country: None (occurrence: None)
  Receive Date: 20060215
  Receipt Date: 20060117
  Transmission Date: 20060701
  Serious: Yes (Death)
  Sender: FDA-Public Use
  Company Number: US-JNJFOC-20050405837

PATIENT
  Sex: Female
  Weight: 61.69 kg

DRUGS (23)
  1. REMICADE [Suspect]
     Dosage: 7 MG/KG
     Route: 042
  2. REMICADE [Suspect]
     Route: 042
  3. REMICADE [Suspect]
     Route: 042
  4. REMICADE [Suspect]
     Route: 042
  5. REMICADE [Suspect]
     Route: 042
  6. REMICADE [Suspect]
     Route: 042
  7. REMICADE [Suspect]
     Route: 042
  8. REMICADE [Suspect]
     Route: 042
  9. REMICADE [Suspect]
     Route: 042
  10. REMICADE [Suspect]
     Route: 042
  11. REMICADE [Suspect]
     Route: 042
  12. REMICADE [Suspect]
     Route: 042
  13. REMICADE [Suspect]
     Route: 042
  14. REMICADE [Suspect]
     Route: 042
  15. REMICADE [Suspect]
     Route: 042
  16. REMICADE [Suspect]
     Route: 042
  17. REMICADE [Suspect]
     Route: 042
  18. REMICADE [Suspect]
     Route: 042
  19. REMICADE [Suspect]
     Indication: RHEUMATOID ARTHRITIS
     Route: 042
  20. ARAVA [Concomitant]
  21. CELEBREX [Concomitant]
  22. LEVOXYL [Concomitant]
  23. PREMARIN [Concomitant]

REACTIONS (47)
  - ABDOMINAL INFECTION [None]
  - ADRENAL DISORDER [None]
  - ARTHRALGIA [None]
  - ASPARTATE AMINOTRANSFERASE INCREASED [None]
  - BLOOD PRESSURE DECREASED [None]
  - BRADYCARDIA [None]
  - CARDIAC ARREST [None]
  - CONDITION AGGRAVATED [None]
  - CONJUNCTIVAL HAEMORRHAGE [None]
  - COUGH [None]
  - CYANOSIS [None]
  - DEPRESSED LEVEL OF CONSCIOUSNESS [None]
  - DIARRHOEA [None]
  - DISSEMINATED INTRAVASCULAR COAGULATION [None]
  - DYSPNOEA [None]
  - FATIGUE [None]
  - FEELING COLD [None]
  - HAEMORRHAGE [None]
  - HAEMORRHAGIC INFARCTION [None]
  - HYPOTENSION [None]
  - INTUBATION COMPLICATION [None]
  - LEUKOPENIA [None]
  - MALAISE [None]
  - MENINGITIS [None]
  - MENTAL STATUS CHANGES [None]
  - NASOPHARYNGITIS [None]
  - NUCLEATED RED CELLS [None]
  - OXYGEN SATURATION DECREASED [None]
  - PHARYNGOLARYNGEAL PAIN [None]
  - PLATELET COUNT DECREASED [None]
  - PNEUMONIA [None]
  - PULSE ABNORMAL [None]
  - PYELONEPHRITIS [None]
  - PYREXIA [None]
  - RESPIRATORY FAILURE [None]
  - RHEUMATOID ARTHRITIS [None]
  - SEBORRHOEIC DERMATITIS [None]
  - SEPTIC SHOCK [None]
  - SHIFT TO THE LEFT [None]
  - SINUSITIS [None]
  - TACHYCARDIA [None]
  - THERAPEUTIC RESPONSE DECREASED [None]
  - THROMBOCYTOPENIA [None]
  - UPPER RESPIRATORY TRACT INFECTION [None]
  - URINARY TRACT INFECTION [None]
  - VITILIGO [None]
  - WOUND HAEMORRHAGE [None]
